FAERS Safety Report 11159750 (Version 3)
Quarter: 2015Q3

REPORT INFORMATION
  Report Type: Spontaneous
  Country: US (occurrence: US)
  Receive Date: 20150603
  Receipt Date: 20150921
  Transmission Date: 20151125
  Serious: No
  Sender: FDA-Public Use
  Company Number: US-GLAXOSMITHKLINE-US2015GSK076323

PATIENT
  Sex: Female

DRUGS (1)
  1. TYKERB [Suspect]
     Active Substance: LAPATINIB DITOSYLATE
     Indication: COLON CANCER
     Dosage: 1250 MG, QD
     Dates: start: 20150509

REACTIONS (8)
  - Gastrooesophageal reflux disease [Unknown]
  - Decreased appetite [Unknown]
  - Stomatitis [Unknown]
  - Fatigue [Unknown]
  - Vomiting [Unknown]
  - Dysgeusia [Unknown]
  - Cheilitis [Unknown]
  - Weight decreased [Unknown]
